FAERS Safety Report 4708902-3 (Version None)
Quarter: 2005Q3

REPORT INFORMATION
  Report Type: 
  Country: None (occurrence: None)
  Receive Date: 20050705
  Receipt Date: 20050621
  Transmission Date: 20060218
  Serious: Yes (Hospitalization, Other)
  Sender: FDA-Public Use
  Company Number: 2004039893

PATIENT
  Age: 62 Year
  Sex: Male
  Weight: 112 kg

DRUGS (3)
  1. VIAGRA [Suspect]
     Indication: ERECTILE DYSFUNCTION
     Dosage: 50 MG (50 MG, AS NECESSARY); ORAL
     Route: 048
     Dates: start: 20001004, end: 20001115
  2. DIAMICRON (GLICLAZIDE) [Concomitant]
  3. DAFLON (DIOSMIN) [Concomitant]

REACTIONS (6)
  - CHOLESTASIS [None]
  - HEPATIC ATROPHY [None]
  - HEPATIC FAILURE [None]
  - HEPATIC NEOPLASM [None]
  - HEPATITIS ACUTE [None]
  - PROTHROMBIN TIME PROLONGED [None]
